FAERS Safety Report 4442059-1 (Version None)
Quarter: 2004Q3

REPORT INFORMATION
  Report Type: 
  Country: None (occurrence: None)
  Receive Date: 20040903
  Receipt Date: 20040526
  Transmission Date: 20050211
  Serious: No
  Sender: FDA-Public Use
  Company Number: 2004UW04772

PATIENT
  Age: 44 Year
  Sex: Male
  Weight: 84.8226 kg

DRUGS (9)
  1. CRESTOR [Suspect]
     Indication: DYSLIPIDAEMIA
     Dosage: 20 MG DAILY PO
     Route: 048
     Dates: start: 20040122, end: 20040128
  2. CYTOTEC [Concomitant]
  3. PROTONIX [Concomitant]
  4. METOPROLOL [Concomitant]
  5. RAMIPRIL [Concomitant]
  6. CARAFATE [Concomitant]
  7. ASPIRIN [Concomitant]
  8. DICLOXACILLIN [Concomitant]
  9. PHENYTOIN [Concomitant]

REACTIONS (1)
  - HEPATITIS ACUTE [None]
